FAERS Safety Report 5515531-0 (Version None)
Quarter: 2007Q4

REPORT INFORMATION
  Report Type: 
  Country: None (occurrence: None)
  Receive Date: 20071113
  Receipt Date: 20070320
  Transmission Date: 20080405
  Serious: No
  Sender: FDA-Public Use
  Company Number: A0643933A

PATIENT
  Age: 55 Year
  Sex: Male

DRUGS (2)
  1. COREG [Suspect]
     Dosage: 25MG TWICE PER DAY
     Route: 048
  2. MULTIPLE MEDICATIONS [Concomitant]

REACTIONS (1)
  - COUGH [None]
